FAERS Safety Report 18422626 (Version 6)
Quarter: 2021Q1

REPORT INFORMATION
  Report Type: Spontaneous
  Country: US (occurrence: US)
  Receive Date: 20201023
  Receipt Date: 20210111
  Transmission Date: 20210419
  Serious: Yes (Other)
  Sender: FDA-Public Use
  Company Number: US-PFIZER INC-2020410131

PATIENT
  Age: 70 Year
  Sex: Female

DRUGS (2)
  1. IBRANCE [Suspect]
     Active Substance: PALBOCICLIB
     Dosage: 75 MG
  2. IBRANCE [Suspect]
     Active Substance: PALBOCICLIB
     Dosage: 125 MG

REACTIONS (13)
  - Impaired healing [Unknown]
  - Sinus disorder [Unknown]
  - Fatigue [Unknown]
  - Arthritis [Unknown]
  - Oral fungal infection [Unknown]
  - Feeling abnormal [Unknown]
  - Pyrexia [Unknown]
  - Depression [Unknown]
  - Nephrolithiasis [Unknown]
  - Alopecia [Unknown]
  - Laryngitis [Unknown]
  - Oropharyngitis fungal [Unknown]
  - Oropharyngeal pain [Unknown]
